FAERS Safety Report 6443027-0 (Version None)
Quarter: 2009Q4

REPORT INFORMATION
  Report Type: 
  Country: None (occurrence: None)
  Receive Date: 20091117
  Receipt Date: 20091105
  Transmission Date: 20100525
  Serious: Yes (Hospitalization)
  Sender: FDA-Public Use
  Company Number: PHHY2009IT48455

PATIENT
  Sex: Female

DRUGS (4)
  1. ZOMETA [Suspect]
     Indication: OSTEOLYSIS
     Dosage: 4 MG/CYCLE
     Route: 042
     Dates: start: 20081125, end: 20090318
  2. ZOMETA [Suspect]
     Indication: HYPERCALCAEMIA
  3. ZOMETA [Suspect]
     Indication: MULTIPLE MYELOMA
  4. THALIDOMIDE [Concomitant]

REACTIONS (4)
  - BONE LESION [None]
  - MUCOSAL HAEMORRHAGE [None]
  - OSTEONECROSIS [None]
  - PAIN [None]
